FAERS Safety Report 4403385-5 (Version None)
Quarter: 2004Q3

REPORT INFORMATION
  Report Type: 
  Country: None (occurrence: None)
  Receive Date: 20040721
  Receipt Date: 20040715
  Transmission Date: 20050211
  Serious: Yes (Hospitalization)
  Sender: FDA-Public Use
  Company Number: PHBS2004NO09403

PATIENT
  Age: 38 Year
  Sex: Female

DRUGS (1)
  1. TEGRETOL [Suspect]
     Indication: POLYNEUROPATHY
     Route: 048
     Dates: end: 20040710

REACTIONS (9)
  - FEELING ABNORMAL [None]
  - HEADACHE [None]
  - LIVER FUNCTION TEST ABNORMAL [None]
  - NAUSEA [None]
  - NIGHT SWEATS [None]
  - PAIN IN EXTREMITY [None]
  - PYREXIA [None]
  - RASH [None]
  - TENDERNESS [None]
